FAERS Safety Report 17763490 (Version 1)
Quarter: 2020Q2

REPORT INFORMATION
  Report Type: Spontaneous
  Country: FR (occurrence: FR)
  Receive Date: 20200509
  Receipt Date: 20200509
  Transmission Date: 20200714
  Serious: Yes (Hospitalization)
  Sender: FDA-Public Use
  Company Number: FR-TEVA-2020-FR-1234700

PATIENT
  Age: 48 Year
  Sex: Female

DRUGS (1)
  1. COPAXONE [Suspect]
     Active Substance: GLATIRAMER ACETATE
     Indication: MULTIPLE SCLEROSIS
     Dosage: NR?FORM STRENGTH: UNKNOWN
     Route: 058
     Dates: start: 201605

REACTIONS (2)
  - Hepatitis acute [Recovered/Resolved]
  - Hepatic failure [Recovered/Resolved]

NARRATIVE: CASE EVENT DATE: 20161119
